FAERS Safety Report 5300657-7 (Version None)
Quarter: 2007Q2

REPORT INFORMATION
  Report Type: 
  Country: None (occurrence: None)
  Receive Date: 20070418
  Receipt Date: 20070417
  Transmission Date: 20071010
  Serious: Yes (Hospitalization)
  Sender: FDA-Public Use
  Company Number: IT-BRISTOL-MYERS SQUIBB COMPANY-13749528

PATIENT
  Age: 30 Year
  Sex: Female

DRUGS (2)
  1. SINEMET [Suspect]
     Route: 048
     Dates: start: 20070314, end: 20070405
  2. LIORESAL [Concomitant]
     Route: 037

REACTIONS (2)
  - DEPRESSED LEVEL OF CONSCIOUSNESS [None]
  - UNRESPONSIVE TO STIMULI [None]
